FAERS Safety Report 6914366-1 (Version None)
Quarter: 2010Q3

REPORT INFORMATION
  Report Type: 
  Country: None (occurrence: None)
  Receive Date: 20100809
  Receipt Date: 20100730
  Transmission Date: 20110219
  Serious: Yes (Hospitalization)
  Sender: FDA-Public Use
  Company Number: CA-ROCHE-661908

PATIENT
  Sex: Male
  Weight: 114.6 kg

DRUGS (3)
  1. CAPECITABINE [Suspect]
     Indication: RECTAL CANCER
     Dosage: LAST DOSE PRIOR TO SAE 27 APRIL 2009
     Route: 048
     Dates: start: 20090323
  2. BEVACIZUMAB [Suspect]
     Indication: RECTAL CANCER
     Dosage: LAST DOSE PRIOR TO SAE 20 APRIL 2009
     Route: 042
     Dates: start: 20090309
  3. OXALIPLATIN [Suspect]
     Indication: RECTAL CANCER
     Dosage: LAST DOSE PRIOR TO SAE: 20 APRIL 2009.
     Route: 042
     Dates: start: 20090323

REACTIONS (2)
  - GASTROENTERITIS RADIATION [None]
  - SMALL INTESTINAL OBSTRUCTION [None]
